FAERS Safety Report 19069390 (Version 1)
Quarter: 2021Q1

REPORT INFORMATION
  Report Type: Report from Study
  Country: DE (occurrence: DE)
  Receive Date: 20210329
  Receipt Date: 20210329
  Transmission Date: 20210420
  Serious: Yes (Hospitalization, Other)
  Sender: FDA-Public Use
  Company Number: DE-SHIRE-DE202013442

PATIENT
  Age: 3 Year
  Sex: Female
  Weight: 14 kg

DRUGS (8)
  1. TEDUGLUTIDE [Suspect]
     Active Substance: TEDUGLUTIDE
     Dosage: 0.26 UNK, QD
     Route: 058
     Dates: start: 20190712
  2. TEDUGLUTIDE [Suspect]
     Active Substance: TEDUGLUTIDE
     Dosage: 0.26 UNK, QD
     Route: 058
     Dates: start: 20190712
  3. TEDUGLUTIDE [Suspect]
     Active Substance: TEDUGLUTIDE
     Indication: SHORT-BOWEL SYNDROME
     Dosage: 1.25 MG/0.26 ML
     Route: 058
     Dates: start: 20190712
  4. TEDUGLUTIDE [Suspect]
     Active Substance: TEDUGLUTIDE
     Indication: SHORT-BOWEL SYNDROME
     Dosage: 1.25 MG/0.26 ML
     Route: 058
     Dates: start: 20190712
  5. TEDUGLUTIDE [Suspect]
     Active Substance: TEDUGLUTIDE
     Indication: SHORT-BOWEL SYNDROME
     Dosage: 1.25 MG/0.26 ML
     Route: 058
     Dates: start: 20190712
  6. TEDUGLUTIDE [Suspect]
     Active Substance: TEDUGLUTIDE
     Dosage: 0.26 UNK, QD
     Route: 058
     Dates: start: 20190712
  7. TEDUGLUTIDE [Suspect]
     Active Substance: TEDUGLUTIDE
     Indication: SHORT-BOWEL SYNDROME
     Dosage: 1.25 MG/0.26 ML
     Route: 058
     Dates: start: 20190712
  8. TEDUGLUTIDE [Suspect]
     Active Substance: TEDUGLUTIDE
     Dosage: 0.26 UNK, QD
     Route: 058
     Dates: start: 20190712

REACTIONS (2)
  - COVID-19 [Unknown]
  - Device related sepsis [Unknown]

NARRATIVE: CASE EVENT DATE: 20200328
